FAERS Safety Report 25319226 (Version 1)
Quarter: 2025Q2

REPORT INFORMATION
  Report Type: Spontaneous
  Country: FR (occurrence: FR)
  Receive Date: 20250515
  Receipt Date: 20250515
  Transmission Date: 20250717
  Serious: Yes (Hospitalization)
  Sender: TEVA
  Company Number: None

PATIENT
  Age: 0 Day
  Sex: Male
  Weight: 1.84 kg

DRUGS (12)
  1. DESLORATADINE [Suspect]
     Active Substance: DESLORATADINE
     Indication: Asthma
     Route: 064
     Dates: start: 20240802, end: 20250314
  2. FOLIC ACID [Suspect]
     Active Substance: FOLIC ACID
     Indication: Vitamin supplementation
     Route: 064
     Dates: start: 20240802, end: 20250314
  3. FERROUS FUMARATE [Suspect]
     Active Substance: FERROUS FUMARATE
     Indication: Iron deficiency
     Route: 064
     Dates: start: 20240802, end: 20250314
  4. FASENRA [Suspect]
     Active Substance: BENRALIZUMAB
     Indication: Asthma
     Route: 064
     Dates: start: 20240802, end: 202409
  5. PREDNISOLONE SODIUM METAZOATE [Suspect]
     Active Substance: PREDNISOLONE SODIUM METAZOATE
     Indication: Asthma
     Route: 064
     Dates: start: 20250216, end: 20250303
  6. PREDNISOLONE SODIUM METAZOATE [Suspect]
     Active Substance: PREDNISOLONE SODIUM METAZOATE
     Indication: Asthma
     Route: 064
     Dates: start: 20250210, end: 20250215
  7. PREDNISOLONE SODIUM METAZOATE [Suspect]
     Active Substance: PREDNISOLONE SODIUM METAZOATE
     Indication: Asthma
     Route: 064
     Dates: start: 20250131, end: 20250205
  8. PREDNISOLONE SODIUM METAZOATE [Suspect]
     Active Substance: PREDNISOLONE SODIUM METAZOATE
     Indication: Asthma
     Route: 064
     Dates: start: 20250303, end: 20250314
  9. PREDNISOLONE SODIUM METAZOATE [Suspect]
     Active Substance: PREDNISOLONE SODIUM METAZOATE
     Indication: Asthma
     Route: 064
     Dates: start: 20250115, end: 20250120
  10. MONTELUKAST [Suspect]
     Active Substance: MONTELUKAST
     Indication: Asthma
     Dosage: MONTELUKAST SODIUM
     Route: 064
     Dates: start: 20240802, end: 20250314
  11. BECLOMETHASONE DIPROPIONATE\FORMOTEROL FUMARATE\GLYCOPYRROLATE [Suspect]
     Active Substance: BECLOMETHASONE DIPROPIONATE\FORMOTEROL FUMARATE\GLYCOPYRROLATE
     Indication: Asthma
     Route: 064
     Dates: start: 20240802, end: 20250314
  12. ALBUTEROL [Suspect]
     Active Substance: ALBUTEROL
     Indication: Asthma
     Route: 064
     Dates: start: 20240802, end: 20250314

REACTIONS (6)
  - Foetal growth restriction [Recovered/Resolved]
  - Maternal exposure before pregnancy [Recovered/Resolved]
  - Caput succedaneum [Recovered/Resolved]
  - Premature baby [Recovered/Resolved]
  - Maternal exposure during pregnancy [Recovered/Resolved]
  - Jaundice neonatal [Recovered/Resolved]

NARRATIVE: CASE EVENT DATE: 20250314
